FAERS Safety Report 5408349-0 (Version None)
Quarter: 2007Q3

REPORT INFORMATION
  Report Type: 
  Country: None (occurrence: None)
  Receive Date: 20070806
  Receipt Date: 20070806
  Transmission Date: 20080115
  Serious: No
  Sender: FDA-Public Use
  Company Number: None

PATIENT
  Age: 8 Year
  Sex: Male
  Weight: 38 kg

DRUGS (7)
  1. PROTONIX [Suspect]
     Indication: ABDOMINAL DISCOMFORT
     Dosage: 40MG ONCE A DAY 042
     Dates: start: 20070228, end: 20070309
  2. CLINDAMYCIN HCL [Suspect]
     Indication: PNEUMONIA
     Dosage: 380MG EVERY 8 HOURS 042
     Dates: start: 20070226, end: 20070302
  3. CLINDAMYCIN HCL [Suspect]
     Indication: TRACHEITIS
     Dosage: 380MG EVERY 8 HOURS 042
     Dates: start: 20070226, end: 20070302
  4. KLONOPIN [Concomitant]
  5. ALBUTEROL [Concomitant]
  6. BENADRYL [Concomitant]
  7. CEFTAZIDIME [Concomitant]

REACTIONS (1)
  - THROMBOCYTOPENIA [None]
